FAERS Safety Report 8168264-9 (Version None)
Quarter: 2012Q1

REPORT INFORMATION
  Report Type: 
  Country: None (occurrence: None)
  Receive Date: 20120227
  Receipt Date: 20120223
  Transmission Date: 20120608
  Serious: Yes (Death)
  Sender: FDA-Public Use
  Company Number: PHHY2012JP015837

PATIENT
  Sex: Female

DRUGS (15)
  1. ACETAMINOPHEN [Concomitant]
     Indication: INFLUENZA
     Dosage: 200 MG, DAILY
     Route: 048
     Dates: start: 20120219
  2. SENNOSIDE [Concomitant]
     Dosage: 24 MG, UNK
     Route: 048
  3. MEDICON (DEXTROMETHORPHAN HYDROBROMIDE) [Concomitant]
     Indication: INFLUENZA
     Dosage: 3 DF, FOR 5 DAYS
     Route: 048
     Dates: start: 20120219
  4. ROHYPNOL [Concomitant]
     Dosage: 2 MG, UNK
     Route: 048
  5. TAMIFLU [Concomitant]
     Indication: INFLUENZA
     Dosage: 2 DF, FOR 5 DAYS
     Route: 048
     Dates: start: 20120219
  6. MAGNESIUM OXIDE [Concomitant]
     Dosage: 1500 MG, UNK
     Route: 048
  7. LITHIUM CARBONATE [Concomitant]
     Dosage: 400 MG, UNK
     Route: 048
  8. PAXIL [Concomitant]
     Dosage: 20 MG, UNK
     Route: 048
  9. CLOZARIL [Suspect]
     Indication: SCHIZOPHRENIA
     Dosage: 600 MG, QD
  10. LEUCON [Concomitant]
     Dosage: 60 MG, UNK
     Route: 048
  11. TERBINAFINE HCL [Concomitant]
     Dosage: 2 MG, UNK
     Route: 048
  12. BLADDERON [Concomitant]
     Dosage: 600 MG, UNK
     Route: 048
  13. TSUMURA DAI-KENCHU-TO [Concomitant]
     Dosage: 3 DF, UNK
     Route: 048
  14. FERROUS SULFATE TAB [Concomitant]
     Dosage: 1 DF, UNK
     Route: 048
  15. DORAL [Concomitant]
     Dosage: 15 MG, UNK
     Route: 048

REACTIONS (6)
  - ABDOMINAL DISTENSION [None]
  - CARDIO-RESPIRATORY ARREST [None]
  - NEUTROPHIL COUNT INCREASED [None]
  - VOMITING [None]
  - MYOCARDIAL INFARCTION [None]
  - WHITE BLOOD CELL COUNT INCREASED [None]
